APPROVED DRUG PRODUCT: PENICILLIN G POTASSIUM
Active Ingredient: PENICILLIN G POTASSIUM
Strength: 5,000,000 UNITS/VIAL
Dosage Form/Route: INJECTABLE;INJECTION
Application: A205043 | Product #001 | TE Code: AP
Applicant: ACS DOBFAR SPA
Approved: Oct 26, 2018 | RLD: No | RS: No | Type: RX